FAERS Safety Report 16172511 (Version 2)
Quarter: 2025Q4

REPORT INFORMATION
  Report Type: Spontaneous
  Country: EU (occurrence: EU)
  Receive Date: 20190409
  Receipt Date: 20251209
  Transmission Date: 20260119
  Serious: Yes (Hospitalization, Other)
  Sender: AUROBINDO
  Company Number: EU-AUROBINDO-AUR-APL-2019-018336

PATIENT
  Age: 73 Year
  Sex: Male

DRUGS (2)
  1. METFORMIN [Suspect]
     Active Substance: METFORMIN HYDROCHLORIDE
     Indication: Diabetes mellitus
     Dosage: UNK
     Route: 065
  2. GLICLAZIDE [Suspect]
     Active Substance: GLICLAZIDE
     Indication: Diabetes mellitus
     Dosage: UNK
     Route: 065

REACTIONS (4)
  - Autoimmune pancreatitis [Unknown]
  - Jaundice cholestatic [Unknown]
  - Weight decreased [Unknown]
  - Metabolic disorder [Unknown]
